FAERS Safety Report 7694497-1 (Version None)
Quarter: 2011Q3

REPORT INFORMATION
  Report Type: 
  Country: None (occurrence: None)
  Receive Date: 20110819
  Receipt Date: 20110808
  Transmission Date: 20111222
  Serious: Yes (Other)
  Sender: FDA-Public Use
  Company Number: PHEH2011US01378

PATIENT
  Sex: Female

DRUGS (4)
  1. PREDNISONE [Suspect]
  2. EXJADE [Suspect]
     Dosage: UNK
     Dates: start: 20090609, end: 20100801
  3. BLOOD TRANSFUSION, AUXILIARY PRODUCTS [Concomitant]
  4. CYCLOSPORINE [Suspect]

REACTIONS (2)
  - HEADACHE [None]
  - RENAL FAILURE [None]
